FAERS Safety Report 8891596 (Version 2)
Quarter: 2012Q4

REPORT INFORMATION
  Report Type: 
  Country: VE (occurrence: VE)
  Receive Date: 20121107
  Receipt Date: 20121116
  Transmission Date: 20130627
  Serious: Yes (Other)
  Sender: FDA-Public Use
  Company Number: VE-PFIZER INC-2012277382

PATIENT
  Age: 68 Year
  Sex: Female

DRUGS (3)
  1. LIPITOR [Suspect]
     Indication: HYPERCHOLESTEROLEMIA
     Dosage: 40 mg, daily
     Route: 048
     Dates: start: 201208, end: 201208
  2. COZAAR [Concomitant]
     Indication: HYPERTENSION ARTERIAL
     Dosage: 50 mg, once daily
     Route: 048
     Dates: start: 2010
  3. ZIAC [Concomitant]
     Indication: HYPERTENSION ARTERIAL
     Dosage: 2.5 mg, once daily
     Route: 048
     Dates: start: 1997

REACTIONS (1)
  - Tachycardia [Recovered/Resolved]
